FAERS Safety Report 8298895-7 (Version None)
Quarter: 2012Q2

REPORT INFORMATION
  Report Type: 
  Country: None (occurrence: None)
  Receive Date: 20120419
  Receipt Date: 20120416
  Transmission Date: 20120825
  Serious: No
  Sender: FDA-Public Use
  Company Number: US-PFIZER INC-2012094451

PATIENT
  Sex: Female

DRUGS (4)
  1. CORTEF [Suspect]
     Dosage: UNK
     Route: 048
     Dates: start: 20100101
  2. HYDROCORTISONE [Suspect]
     Indication: ADRENAL INSUFFICIENCY
     Dosage: 20 MG (BY TAKING TWO TABLETS OF 10MG), 3X/DAY
     Route: 048
     Dates: start: 20100101, end: 20100101
  3. CORTEF [Suspect]
     Indication: ADRENAL INSUFFICIENCY
     Dosage: 20 MG (BY TAKING TWO TABLETS OF 10MG), 3X/DAY
     Route: 048
     Dates: start: 20080601, end: 20100101
  4. PROGESTERONE [Concomitant]
     Dosage: UNK

REACTIONS (5)
  - ADRENAL DISORDER [None]
  - DRUG INEFFECTIVE [None]
  - SCREAMING [None]
  - IRRITABILITY [None]
  - PERSONALITY DISORDER [None]
